FAERS Safety Report 6155064-4 (Version None)
Quarter: 2009Q2

REPORT INFORMATION
  Report Type: 
  Country: None (occurrence: None)
  Receive Date: 20090410
  Receipt Date: 20090401
  Transmission Date: 20091009
  Serious: Yes (Other)
  Sender: FDA-Public Use
  Company Number: GXKR2009GB04168

PATIENT
  Sex: Female

DRUGS (6)
  1. METFORMIN HCL [Suspect]
     Indication: DIABETES MELLITUS
     Dosage: 500 MG, TID, ORAL
     Route: 048
     Dates: start: 20070212
  2. SIMVASTATIN [Suspect]
     Dosage: 10 MG,
     Dates: start: 20040901
  3. CALCICHEW D3 (CALCIUM CARBONATE, COLECALCIFEROL) [Concomitant]
  4. FOSAVANCE (ALENDRONATE SODIUM, COLECALCIFEROL) [Concomitant]
  5. GAVISCON /OLD FORM/ 9ALGENIC ACID, ALUMINUM HYDROXIDE GEL, DRIED, MAGN [Concomitant]
  6. ACETAMINOPHEN [Concomitant]

REACTIONS (2)
  - ALOPECIA [None]
  - DIARRHOEA [None]
